FAERS Safety Report 23878712 (Version 1)
Quarter: 2024Q2

REPORT INFORMATION
  Report Type: Spontaneous
  Country: US (occurrence: US)
  Receive Date: 20240521
  Receipt Date: 20240521
  Transmission Date: 20240716
  Serious: Yes (Other)
  Sender: FDA-Public Use
  Company Number: US-AMGEN-USASP2024096984

PATIENT
  Age: 83 Year
  Sex: Male

DRUGS (9)
  1. ARANESP [Suspect]
     Active Substance: DARBEPOETIN ALFA
     Indication: Renal disorder
     Dosage: UNK
     Route: 065
  2. ARANESP [Suspect]
     Active Substance: DARBEPOETIN ALFA
     Dosage: UNK, DOSE DECREASED
     Route: 065
     Dates: start: 202405
  3. WARFARIN [Concomitant]
     Active Substance: WARFARIN
  4. INSULIN NOS [Concomitant]
     Active Substance: INSULIN NOS
  5. COLACE [Concomitant]
     Active Substance: DOCUSATE SODIUM
  6. MIDODRINE [Concomitant]
     Active Substance: MIDODRINE
  7. PANCRELIPASE [Concomitant]
     Active Substance: PANCRELIPASE
  8. PYRIDOXINE [Concomitant]
     Active Substance: PYRIDOXINE
  9. VITAMIN B12 [Concomitant]
     Active Substance: CYANOCOBALAMIN

REACTIONS (2)
  - Thrombosis [Unknown]
  - International normalised ratio increased [Unknown]

NARRATIVE: CASE EVENT DATE: 20240501
